FAERS Safety Report 20646811 (Version 2)
Quarter: 2022Q2

REPORT INFORMATION
  Report Type: Spontaneous
  Country: US (occurrence: US)
  Receive Date: 20220329
  Receipt Date: 20220616
  Transmission Date: 20220721
  Serious: Yes (Hospitalization)
  Sender: FDA-Public Use
  Company Number: US-RECORDATI RARE DISEASE INC.-2022001056

PATIENT
  Age: 37 Year
  Sex: Male

DRUGS (1)
  1. TRANXENE [Suspect]
     Active Substance: CLORAZEPATE DIPOTASSIUM
     Indication: Lennox-Gastaut syndrome
     Dosage: 7.5 MILLIGRAM, 3 TABLETS, Q8H
     Route: 048
     Dates: end: 20211217

REACTIONS (3)
  - Mechanical ventilation [Unknown]
  - Therapy interrupted [Unknown]
  - Product availability issue [Unknown]
